FAERS Safety Report 21878194 (Version 1)
Quarter: 2023Q1

REPORT INFORMATION
  Report Type: Report from Study
  Country: US (occurrence: US)
  Receive Date: 20230118
  Receipt Date: 20230118
  Transmission Date: 20230418
  Serious: Yes (Other)
  Sender: FDA-Public Use
  Company Number: US-ABBVIE-4271928

PATIENT
  Age: 77 Year
  Sex: Male

DRUGS (1)
  1. LUPRON [Suspect]
     Active Substance: LEUPROLIDE ACETATE
     Indication: Product used for unknown indication
     Route: 065

REACTIONS (4)
  - Prostate cancer [Unknown]
  - Abdominal fat apron [Recovering/Resolving]
  - Hot flush [Recovering/Resolving]
  - Alopecia universalis [Recovering/Resolving]

NARRATIVE: CASE EVENT DATE: 20170101
